FAERS Safety Report 20149271 (Version 1)
Quarter: 2021Q4

REPORT INFORMATION
  Report Type: Report from Study
  Country: BR (occurrence: BR)
  Receive Date: 20211205
  Receipt Date: 20211205
  Transmission Date: 20220303
  Serious: Yes (Other)
  Sender: FDA-Public Use
  Company Number: BR-NOVARTISPH-NVSC2021BR268795

PATIENT
  Age: 69 Year
  Sex: Female

DRUGS (7)
  1. ZOLEDRONIC ACID [Suspect]
     Active Substance: ZOLEDRONIC ACID
     Indication: Invasive ductal breast carcinoma
     Dosage: QUARTERLY
     Route: 065
     Dates: start: 20191024
  2. PACLITAXEL [Suspect]
     Active Substance: PACLITAXEL
     Indication: Invasive ductal breast carcinoma
     Dosage: QUARTERLY
     Route: 065
     Dates: start: 20191024
  3. PACLITAXEL [Suspect]
     Active Substance: PACLITAXEL
     Dosage: UNK
     Route: 065
     Dates: start: 202010
  4. ANASTROZOLE [Concomitant]
     Active Substance: ANASTROZOLE
     Indication: Invasive ductal breast carcinoma
     Dosage: UNK
     Route: 065
     Dates: start: 20200521
  5. FULVESTRANT [Concomitant]
     Active Substance: FULVESTRANT
     Indication: Invasive ductal breast carcinoma
     Dosage: UNK
     Route: 065
     Dates: start: 202101
  6. RIBOCICLIB [Concomitant]
     Active Substance: RIBOCICLIB
     Indication: Invasive ductal breast carcinoma
     Dosage: UNK
     Route: 065
     Dates: start: 202005
  7. RIBOCICLIB [Concomitant]
     Active Substance: RIBOCICLIB
     Dosage: 400 MG, QD (SECOND CYCLE)
     Route: 065

REACTIONS (20)
  - Invasive ductal breast carcinoma [Unknown]
  - Malignant neoplasm progression [Unknown]
  - Cerebral thrombosis [Unknown]
  - Intracranial aneurysm [Unknown]
  - Metastases to lung [Unknown]
  - Neuropathy peripheral [Recovering/Resolving]
  - Neutropenia [Unknown]
  - Breast haemorrhage [Unknown]
  - Breast pain [Unknown]
  - Skin lesion [Recovering/Resolving]
  - Skin odour abnormal [Recovering/Resolving]
  - Bone lesion [Recovering/Resolving]
  - Lung opacity [Unknown]
  - Dyspnoea [Recovering/Resolving]
  - Cough [Recovering/Resolving]
  - Infection [Recovering/Resolving]
  - Paronychia [Unknown]
  - Nausea [Unknown]
  - Nail dystrophy [Unknown]
  - Quality of life decreased [Unknown]
